FAERS Safety Report 16097761 (Version 1)
Quarter: 2019Q1

REPORT INFORMATION
  Report Type: Spontaneous
  Country: GR (occurrence: GR)
  Receive Date: 20190320
  Receipt Date: 20190320
  Transmission Date: 20190418
  Serious: Yes (Other)
  Sender: FDA-Public Use
  Company Number: GR-GILEAD-2019-0397253

PATIENT
  Age: 39 Year
  Sex: Male

DRUGS (1)
  1. EPCLUSA [Suspect]
     Active Substance: SOFOSBUVIR\VELPATASVIR
     Indication: HEPATITIS C
     Dosage: UNK
     Route: 065
     Dates: start: 201902

REACTIONS (2)
  - Headache [Not Recovered/Not Resolved]
  - Diastolic hypertension [Not Recovered/Not Resolved]

NARRATIVE: CASE EVENT DATE: 20190314
